FAERS Safety Report 10473981 (Version 3)
Quarter: 2015Q1

REPORT INFORMATION
  Report Type: Spontaneous
  Country: US (occurrence: US)
  Receive Date: 20140924
  Receipt Date: 20150223
  Transmission Date: 20150720
  Serious: No
  Sender: FDA-Public Use
  Company Number: US-PFIZER INC-2014262285

PATIENT
  Age: 81 Year
  Sex: Female
  Weight: 74.83 kg

DRUGS (1)
  1. LYRICA [Suspect]
     Active Substance: PREGABALIN
     Indication: FIBROMYALGIA
     Dosage: UNK

REACTIONS (5)
  - Weight increased [Unknown]
  - Abdominal pain upper [Unknown]
  - Gait disturbance [Unknown]
  - Back disorder [Unknown]
  - Malaise [Unknown]
